FAERS Safety Report 8428670-1 (Version None)
Quarter: 2012Q2

REPORT INFORMATION
  Report Type: 
  Country: None (occurrence: None)
  Receive Date: 20120606
  Receipt Date: 20120523
  Transmission Date: 20120825
  Serious: Yes (Other)
  Sender: FDA-Public Use
  Company Number: 1301631

PATIENT
  Age: 62 Year
  Sex: Male

DRUGS (3)
  1. FLUOROURACIL [Concomitant]
  2. OXALIPLATIN [Suspect]
     Indication: BILE DUCT CANCER
     Dosage: 100 MG/M^2, INTRAVENOUS DRIP
     Route: 041
  3. LEUCOVORIN CALCIUM [Concomitant]

REACTIONS (4)
  - DYSPHAGIA [None]
  - NEUTROPENIA [None]
  - URINARY RETENTION [None]
  - GUILLAIN-BARRE SYNDROME [None]
